FAERS Safety Report 5513767-6 (Version None)
Quarter: 2007Q4

REPORT INFORMATION
  Report Type: 
  Country: None (occurrence: None)
  Receive Date: 20071113
  Receipt Date: 20071105
  Transmission Date: 20080405
  Serious: Yes (Hospitalization)
  Sender: FDA-Public Use
  Company Number: PHBS2007AT15154

PATIENT
  Age: 71 Year
  Sex: Female

DRUGS (13)
  1. GLEEVEC [Suspect]
     Indication: CHRONIC MYELOID LEUKAEMIA
     Dosage: 400 MG, QD
     Route: 048
     Dates: start: 20071015, end: 20070704
  2. VITAMIN B-12 [Concomitant]
  3. PANTOLOC ^SOLVAY^ [Concomitant]
     Indication: REFLUX GASTRITIS
     Dosage: 20 MG, QD
     Route: 048
  4. GLADEM [Concomitant]
     Indication: DEPRESSION
     Dosage: 50 MG, QD
     Route: 048
  5. CALCIUM WITH VITAMIN D [Concomitant]
     Indication: OSTEOPOROSIS
  6. DILZEM ^WARNER-LAMBERT^ [Concomitant]
     Indication: RAYNAUD'S PHENOMENON
     Dosage: 90 MG, QD
     Route: 048
  7. FERRETAB [Concomitant]
     Indication: IRON DEFICIENCY ANAEMIA
     Dosage: 100 MG, QD
     Route: 048
  8. MODURETIC 5-50 [Concomitant]
     Indication: OEDEMA
     Dosage: UNK, QD
     Route: 048
  9. RESTEX [Concomitant]
     Indication: RESTLESS LEGS SYNDROME
     Dosage: UNK, QD
     Route: 048
  10. AUGMENTIN /UNK/ [Concomitant]
     Dosage: 2 G, QD
     Route: 048
  11. AVELOX [Concomitant]
     Dosage: 400 MG, QD
     Route: 042
  12. OPTINEM [Concomitant]
     Dosage: 3 G, QD
     Route: 042
  13. VALTREX [Concomitant]
     Indication: ORAL HERPES
     Dosage: 1 G, QD
     Route: 048

REACTIONS (16)
  - ASCITES [None]
  - BILE DUCT PRESSURE INCREASED [None]
  - BRONCHITIS [None]
  - CHOLANGITIS [None]
  - DECREASED APPETITE [None]
  - DYSPNOEA [None]
  - EMPHYSEMA [None]
  - HEPATIC LESION [None]
  - INFLUENZA [None]
  - PLEURAL EFFUSION [None]
  - PLEURAL FIBROSIS [None]
  - POLYSEROSITIS [None]
  - PYREXIA [None]
  - RED BLOOD CELL SEDIMENTATION RATE INCREASED [None]
  - RENAL CYST [None]
  - WEIGHT DECREASED [None]
